FAERS Safety Report 9351274 (Version 3)
Quarter: 2013Q3

REPORT INFORMATION
  Report Type: Spontaneous
  Country: US (occurrence: US)
  Receive Date: 20130617
  Receipt Date: 20130726
  Transmission Date: 20140515
  Serious: Yes (Other)
  Sender: FDA-Public Use
  Company Number: US-PFIZER INC-2013179912

PATIENT
  Age: 50 Year
  Sex: Female
  Weight: 53.52 kg

DRUGS (14)
  1. GABAPENTIN [Suspect]
     Indication: FIBROMYALGIA
     Dosage: 100 MG, 3X/DAY
     Route: 048
     Dates: start: 20120910
  2. GABAPENTIN [Suspect]
     Indication: PAIN
     Dosage: 100 MG, 1X/DAY
     Dates: start: 201301, end: 2013
  3. LYRICA [Suspect]
     Dosage: UNK
  4. CRESTOR [Concomitant]
     Indication: CARDIAC DISORDER
     Dosage: UNK
  5. ISOSORBIDE DINITRATE [Concomitant]
     Indication: CARDIAC DISORDER
     Dosage: UNK
  6. LISINOPRIL [Concomitant]
     Indication: CARDIAC DISORDER
     Dosage: UNK
  7. METOPROLOL [Concomitant]
     Indication: CARDIAC DISORDER
     Dosage: UNK
  8. TRICOR [Concomitant]
     Indication: CARDIAC DISORDER
     Dosage: UNK
  9. XANAX [Concomitant]
     Indication: ANXIETY
     Dosage: UNK
  10. LORTAB [Concomitant]
     Dosage: 5/500 MG, UNK
  11. PERCOCET [Concomitant]
     Dosage: 325/5
  12. ALPRAZOLAM [Concomitant]
     Dosage: 0.5 MG, UNK
  13. DIAZEPAM [Concomitant]
     Dosage: 5 MG
  14. HYDROCODONE/APAP [Concomitant]
     Dosage: 10/500, 1 DF, 3X/DAY

REACTIONS (7)
  - Off label use [Unknown]
  - Myocardial infarction [Unknown]
  - Blood potassium decreased [Unknown]
  - Choking [Unknown]
  - Flatulence [Unknown]
  - Pain [Unknown]
  - Drug effect incomplete [Unknown]
